FAERS Safety Report 23383260 (Version 1)
Quarter: 2024Q1

REPORT INFORMATION
  Report Type: Spontaneous
  Country: US (occurrence: US)
  Receive Date: 20240109
  Receipt Date: 20240109
  Transmission Date: 20240410
  Serious: Yes (Death)
  Sender: FDA-Public Use
  Company Number: US-BRIAN CONNER SVP QUALITY AND CHIEF COMPLIANCE OFFICER-2023XER02394

PATIENT
  Sex: Female

DRUGS (3)
  1. GVOKE [Suspect]
     Active Substance: GLUCAGON
     Indication: Hypoglycaemia
     Dosage: 1-2 INJECTIONS
  2. INSULIN NOS [Suspect]
     Active Substance: INSULIN NOS
  3. UNSPECIFIED INGREDIENT [Suspect]
     Active Substance: UNSPECIFIED INGREDIENT
     Indication: Diabetes mellitus

REACTIONS (2)
  - Death [Fatal]
  - Overdose [Fatal]

NARRATIVE: CASE EVENT DATE: 20231101
